FAERS Safety Report 14330060 (Version 3)
Quarter: 2018Q1

REPORT INFORMATION
  Report Type: Spontaneous
  Country: US (occurrence: US)
  Receive Date: 20171227
  Receipt Date: 20180123
  Transmission Date: 20180509
  Serious: Yes (Other)
  Sender: FDA-Public Use
  Company Number: US-ALEXION-A201714379

PATIENT
  Age: 9 Year
  Sex: Male

DRUGS (2)
  1. SOLIRIS [Suspect]
     Active Substance: ECULIZUMAB
     Indication: THROMBOTIC MICROANGIOPATHY
     Dosage: UNK, UNK
     Route: 065
  2. SOLIRIS [Suspect]
     Active Substance: ECULIZUMAB
     Indication: OFF LABEL USE
     Dosage: UNK, UNK
     Route: 065

REACTIONS (8)
  - Thrombotic microangiopathy [Not Recovered/Not Resolved]
  - Staphylococcal infection [Unknown]
  - Off label use [Unknown]
  - Graft versus host disease [Not Recovered/Not Resolved]
  - Liver injury [Not Recovered/Not Resolved]
  - Bedridden [Unknown]
  - Pain [Unknown]
  - Bacterial infection [Unknown]
